FAERS Safety Report 10240727 (Version 2)
Quarter: 2014Q2

REPORT INFORMATION
  Report Type: Report from Study
  Country: KR (occurrence: KR)
  Receive Date: 20140617
  Receipt Date: 20140617
  Transmission Date: 20141212
  Serious: Yes (Hospitalization)
  Sender: FDA-Public Use
  Company Number: KR-ASTRAZENECA-2014SE33442

PATIENT
  Age: 22453 Day
  Sex: Male
  Weight: 60 kg

DRUGS (7)
  1. BRILINTA [Suspect]
     Indication: ACUTE MYOCARDIAL INFARCTION
     Route: 048
     Dates: start: 20130805
  2. MUCOSTA [Concomitant]
     Indication: GASTROINTESTINAL DISORDER THERAPY
     Dates: start: 20130805
  3. CURAN [Concomitant]
     Indication: GASTROINTESTINAL DISORDER THERAPY
     Dates: start: 20130805
  4. SIGMART TAB [Concomitant]
     Indication: CARDIOVASCULAR DISORDER
     Dates: start: 20130805
  5. VASTINAN TAB MR [Concomitant]
     Indication: CARDIOVASCULAR DISORDER
     Dates: start: 20130805
  6. LIPITOR TAB [Concomitant]
     Indication: HYPERLIPIDAEMIA
     Dates: start: 20130805
  7. ASPIRIN [Concomitant]
     Indication: CARDIOVASCULAR DISORDER
     Dates: start: 20130805

REACTIONS (1)
  - Myocardial infarction [Recovered/Resolved]
